FAERS Safety Report 9912974 (Version 4)
Quarter: 2014Q1

REPORT INFORMATION
  Report Type: Report from Study
  Country: US (occurrence: US)
  Receive Date: 20140220
  Receipt Date: 20140305
  Transmission Date: 20141002
  Serious: Yes (Hospitalization)
  Sender: FDA-Public Use
  Company Number: US-JNJFOC-20140210458

PATIENT
  Age: 17 Year
  Sex: Male
  Weight: 51.2 kg

DRUGS (4)
  1. REMICADE [Suspect]
     Indication: INFLAMMATORY BOWEL DISEASE
     Route: 042
     Dates: start: 20110930
  2. METHOTREXATE [Concomitant]
     Route: 065
  3. FOLIC ACID [Concomitant]
     Route: 065
  4. PRILOSEC [Concomitant]
     Route: 065

REACTIONS (2)
  - Colitis ulcerative [Recovered/Resolved]
  - Influenza [Recovered/Resolved]
